FAERS Safety Report 6773326-4 (Version None)
Quarter: 2010Q2

REPORT INFORMATION
  Report Type: 
  Country: None (occurrence: None)
  Receive Date: 20100616
  Receipt Date: 20100408
  Transmission Date: 20101027
  Serious: No
  Sender: FDA-Public Use
  Company Number: US-ABBOTT-10P-163-0638589-00

PATIENT
  Sex: Female
  Weight: 61.29 kg

DRUGS (3)
  1. TRILIPIX [Suspect]
     Indication: BLOOD CHOLESTEROL INCREASED
     Dosage: 135 MG DAILY
     Dates: start: 20100317, end: 20100317
  2. TRILIPIX [Suspect]
     Indication: BLOOD TRIGLYCERIDES INCREASED
  3. TRANDOLAPRIL [Concomitant]
     Indication: HYPERTENSION
     Dosage: 1 MG DAILY

REACTIONS (4)
  - DECREASED APPETITE [None]
  - DIARRHOEA [None]
  - VOMITING [None]
  - WEIGHT DECREASED [None]
